FAERS Safety Report 6193473-8 (Version None)
Quarter: 2009Q2

REPORT INFORMATION
  Report Type: 
  Country: None (occurrence: None)
  Receive Date: 20090518
  Receipt Date: 20090505
  Transmission Date: 20091009
  Serious: Yes (Life-Threatening, Hospitalization)
  Sender: FDA-Public Use
  Company Number: PH-TYCO HEALTHCARE/MALLINCKRODT-T200900991

PATIENT
  Age: 53 Year
  Sex: Female

DRUGS (1)
  1. OPTIRAY 300 [Suspect]
     Indication: COMPUTERISED TOMOGRAM
     Dosage: 90 ML, SINGLE
     Route: 042
     Dates: start: 20090504, end: 20090504

REACTIONS (4)
  - CARDIO-RESPIRATORY ARREST [None]
  - DYSPNOEA [None]
  - INJECTION SITE URTICARIA [None]
  - SWOLLEN TONGUE [None]
